FAERS Safety Report 4603259-0 (Version None)
Quarter: 2005Q1

REPORT INFORMATION
  Report Type: 
  Country: None (occurrence: None)
  Receive Date: 20050308
  Receipt Date: 20050221
  Transmission Date: 20050727
  Serious: Yes (Death, Hospitalization)
  Sender: FDA-Public Use
  Company Number: FABR-10717

PATIENT
  Age: 40 Year
  Sex: Male
  Weight: 95 kg

DRUGS (2)
  1. FABRAZYME [Suspect]
     Indication: FABRY'S DISEASE
     Dosage: 1 MG/KG Q2WKS IV
     Route: 042
     Dates: start: 20030116, end: 20040723
  2. CARDACE [Concomitant]

REACTIONS (27)
  - AORTIC VALVE SCLEROSIS [None]
  - BLOOD CHOLESTEROL INCREASED [None]
  - BRAIN HERNIATION [None]
  - CALCINOSIS [None]
  - CARDIOMEGALY [None]
  - CEREBRAL ARTERY OCCLUSION [None]
  - CEREBRAL DISORDER [None]
  - CEREBRAL INFARCTION [None]
  - CEREBRAL ISCHAEMIA [None]
  - DEEP VEIN THROMBOSIS [None]
  - EJECTION FRACTION DECREASED [None]
  - GAZE PALSY [None]
  - HYPOTONIA [None]
  - INTRACRANIAL PRESSURE INCREASED [None]
  - MYOCARDIAL INFARCTION [None]
  - MYOCARDIAL ISCHAEMIA [None]
  - POSTICTAL STATE [None]
  - PULMONARY EMBOLISM [None]
  - PULMONARY OEDEMA [None]
  - PUPIL FIXED [None]
  - RENAL ATROPHY [None]
  - SCAR [None]
  - SPASTIC PARALYSIS [None]
  - STRIDOR [None]
  - UNRESPONSIVE TO PAIN STIMULI [None]
  - UNRESPONSIVE TO VERBAL STIMULI [None]
  - VENTRICULAR HYPERTROPHY [None]
